FAERS Safety Report 14531929 (Version 1)
Quarter: 2018Q1

REPORT INFORMATION
  Report Type: Spontaneous
  Country: DE (occurrence: DE)
  Receive Date: 20180214
  Receipt Date: 20180214
  Transmission Date: 20180509
  Serious: Yes (Hospitalization)
  Sender: FDA-Public Use
  Company Number: DE-TEVA-2018-DE-855871

PATIENT
  Age: 28 Year
  Sex: Female

DRUGS (20)
  1. SERTRALINE [Suspect]
     Active Substance: SERTRALINE HYDROCHLORIDE
     Route: 065
     Dates: start: 20140729
  2. ABILIFY [Suspect]
     Active Substance: ARIPIPRAZOLE
     Route: 065
     Dates: start: 20140621, end: 20140622
  3. LYOGEN [Suspect]
     Active Substance: FLUPHENAZINE
     Indication: SCHIZOAFFECTIVE DISORDER
     Route: 065
     Dates: start: 20140728
  4. LYOGEN [Suspect]
     Active Substance: FLUPHENAZINE
     Route: 065
     Dates: start: 20140709, end: 20140727
  5. ABILIFY [Suspect]
     Active Substance: ARIPIPRAZOLE
     Route: 065
     Dates: start: 20140611, end: 20140619
  6. ABILIFY [Suspect]
     Active Substance: ARIPIPRAZOLE
     Route: 065
     Dates: start: 20140625, end: 20140626
  7. FLUPHENAZINE DECANOATE. [Suspect]
     Active Substance: FLUPHENAZINE DECANOATE
     Indication: SCHIZOAFFECTIVE DISORDER
     Route: 048
     Dates: start: 20140708
  8. SOLIAN [Suspect]
     Active Substance: AMISULPRIDE
     Route: 048
     Dates: start: 20140626
  9. LYOGEN [Suspect]
     Active Substance: FLUPHENAZINE
     Route: 048
     Dates: start: 20140709, end: 20140727
  10. LYOGEN [Suspect]
     Active Substance: FLUPHENAZINE
     Route: 065
     Dates: start: 20140708
  11. AKINETON [Concomitant]
     Active Substance: BIPERIDEN HYDROCHLORIDE
     Route: 065
     Dates: start: 20140715
  12. SOLIAN [Suspect]
     Active Substance: AMISULPRIDE
     Route: 048
     Dates: start: 20140627, end: 20140707
  13. SERTRALINE [Suspect]
     Active Substance: SERTRALINE HYDROCHLORIDE
     Indication: SCHIZOAFFECTIVE DISORDER
     Route: 065
     Dates: start: 20140710, end: 20140723
  14. ABILIFY [Suspect]
     Active Substance: ARIPIPRAZOLE
     Route: 065
     Dates: start: 20140629
  15. FLUPHENAZINE DECANOATE. [Suspect]
     Active Substance: FLUPHENAZINE DECANOATE
     Route: 048
     Dates: start: 20140728
  16. AKINETON [Concomitant]
     Active Substance: BIPERIDEN HYDROCHLORIDE
     Indication: PRODUCT USED FOR UNKNOWN INDICATION
     Route: 065
     Dates: start: 20140711, end: 20140714
  17. ABILIFY [Suspect]
     Active Substance: ARIPIPRAZOLE
     Indication: SCHIZOAFFECTIVE DISORDER
     Route: 065
     Dates: start: 20140620
  18. ABILIFY [Suspect]
     Active Substance: ARIPIPRAZOLE
     Route: 065
     Dates: start: 20140623, end: 20140624
  19. SOLIAN [Suspect]
     Active Substance: AMISULPRIDE
     Indication: SCHIZOAFFECTIVE DISORDER
     Route: 048
     Dates: start: 20140709
  20. AKINETON [Concomitant]
     Active Substance: BIPERIDEN HYDROCHLORIDE
     Dosage: UNK
     Route: 065
     Dates: start: 20140711, end: 20140714

REACTIONS (7)
  - Blood prolactin increased [Recovering/Resolving]
  - Blood prolactin increased [Recovering/Resolving]
  - Accommodation disorder [Recovered/Resolved]
  - Flatulence [Recovered/Resolved]
  - Musculoskeletal stiffness [Recovered/Resolved]
  - Constipation [Recovered/Resolved]
  - Underdose [Unknown]

NARRATIVE: CASE EVENT DATE: 20140612
